FAERS Safety Report 4983017-8 (Version None)
Quarter: 2006Q2

REPORT INFORMATION
  Report Type: 
  Country: None (occurrence: None)
  Receive Date: 20060420
  Receipt Date: 20060407
  Transmission Date: 20061013
  Serious: Yes (Hospitalization)
  Sender: FDA-Public Use
  Company Number: 2006049218

PATIENT
  Age: 68 Year
  Sex: Male

DRUGS (4)
  1. NARDIL [Suspect]
     Indication: DEPRESSION
     Dosage: 60 MG (30 MG, 2 IN 1 D)
  2. BENICAR [Concomitant]
  3. LACTOSE (LACTOSE) [Concomitant]
  4. SOTALOL HCL [Concomitant]

REACTIONS (5)
  - ARRHYTHMIA [None]
  - CIRCUMSTANCE OR INFORMATION CAPABLE OF LEADING TO MEDICATION ERROR [None]
  - DRUG INEFFECTIVE [None]
  - HYPOTENSION [None]
  - SLEEP DISORDER [None]
